FAERS Safety Report 7590478-7 (Version None)
Quarter: 2011Q3

REPORT INFORMATION
  Report Type: 
  Country: None (occurrence: None)
  Receive Date: 20110705
  Receipt Date: 20110128
  Transmission Date: 20111222
  Serious: Yes (Death, Hospitalization, Other)
  Sender: FDA-Public Use
  Company Number: US-BAYER-US-2007-020128

PATIENT
  Age: 55 Year
  Sex: Female

DRUGS (2)
  1. ANTIBIOTICS [Suspect]
     Indication: BRAIN ABSCESS
     Dosage: UNK, UNK
     Route: 042
  2. BETASERON [Suspect]
     Indication: MULTIPLE SCLEROSIS
     Dosage: 8 MIU, QOD
     Route: 058
     Dates: start: 20070226, end: 20100901

REACTIONS (6)
  - MULTIPLE SCLEROSIS [None]
  - DEATH [None]
  - APHAGIA [None]
  - ASTHENIA [None]
  - DYSPHAGIA [None]
  - BRAIN ABSCESS [None]
